FAERS Safety Report 21228835 (Version 1)
Quarter: 2022Q3

REPORT INFORMATION
  Report Type: Spontaneous
  Country: US (occurrence: None)
  Receive Date: 20220818
  Receipt Date: 20220818
  Transmission Date: 20221027
  Serious: No
  Sender: FDA-Public Use
  Company Number: None

PATIENT
  Age: 71 Year
  Sex: Female

DRUGS (1)
  1. KETOCONAZOLE [Suspect]
     Active Substance: KETOCONAZOLE
     Indication: Psoriasis
     Dosage: FREQUENCY : AS DIRECTED;?APPLY AS A SHAMPOO, LEAVE ON FOR 5 MINUTES THEN RINSE?AS DIRECTED,?
     Dates: start: 202207

REACTIONS (1)
  - Hospitalisation [None]
